FAERS Safety Report 12846858 (Version 1)
Quarter: 2016Q4

REPORT INFORMATION
  Report Type: Not Available
  Country: None (occurrence: US)
  Receive Date: 20161014
  Receipt Date: 20161014
  Transmission Date: 20170207
  Serious: Yes (Hospitalization, Other)
  Sender: FDA-Public Use
  Company Number: US-AKORN-41144

PATIENT
  Age: 50 Year
  Sex: Male

DRUGS (1)
  1. SULFAMETHOXAZOLE AND TRIMETHOPRIM ORAL SUSPENSION, USP [Suspect]
     Active Substance: SULFAMETHOXAZOLE\TRIMETHOPRIM

REACTIONS (7)
  - Dyspnoea exertional [None]
  - Organising pneumonia [None]
  - Pulmonary toxicity [None]
  - Lung infiltration [None]
  - Hypoxia [None]
  - Pleuritic pain [None]
  - Epigastric discomfort [None]
